FAERS Safety Report 10198064 (Version 3)
Quarter: 2014Q3

REPORT INFORMATION
  Report Type: Spontaneous
  Country: AU (occurrence: AU)
  Receive Date: 20140527
  Receipt Date: 20140915
  Transmission Date: 20150326
  Serious: Yes (Hospitalization, Other)
  Sender: FDA-Public Use
  Company Number: AU-ABBVIE-14P-008-1209750-00

PATIENT
  Age: 67 Year
  Sex: Male

DRUGS (2)
  1. LUCRIN DEPOT [Suspect]
     Active Substance: LEUPROLIDE ACETATE
     Indication: PRODUCT USED FOR UNKNOWN INDICATION
     Dates: start: 20130614
  2. ENBREL [Suspect]
     Active Substance: ETANERCEPT
     Indication: ANKYLOSING SPONDYLITIS
     Dates: end: 201312

REACTIONS (9)
  - Pain [Unknown]
  - Abdominal pain [Not Recovered/Not Resolved]
  - Chest pain [Unknown]
  - Bone cancer [Unknown]
  - Malaise [Unknown]
  - Abasia [Unknown]
  - Pain in extremity [Not Recovered/Not Resolved]
  - Inflammatory marker increased [Unknown]
  - Musculoskeletal chest pain [Unknown]

NARRATIVE: CASE EVENT DATE: 201312
